FAERS Safety Report 24893208 (Version 2)
Quarter: 2025Q2

REPORT INFORMATION
  Report Type: Report from Study
  Country: AR (occurrence: AR)
  Receive Date: 20250128
  Receipt Date: 20250403
  Transmission Date: 20250717
  Serious: Yes (Other)
  Sender: CHIESI
  Company Number: AR-CHIESI-2024CHF08530

PATIENT
  Sex: Female

DRUGS (1)
  1. METRELEPTIN [Suspect]
     Active Substance: METRELEPTIN
     Indication: Product used for unknown indication

REACTIONS (3)
  - Glomerulonephritis [Unknown]
  - Application site pruritus [Unknown]
  - Weight decreased [Unknown]
